FAERS Safety Report 7215772-0 (Version None)
Quarter: 2011Q1

REPORT INFORMATION
  Report Type: 
  Country: None (occurrence: None)
  Receive Date: 20110107
  Receipt Date: 20101228
  Transmission Date: 20110831
  Serious: Yes (Other)
  Sender: FDA-Public Use
  Company Number: US-MYLANLABS-2010S1023754

PATIENT
  Age: 30 Year
  Sex: Female

DRUGS (2)
  1. AMNESTEEM [Suspect]
  2. AMNESTEEM [Suspect]
     Dates: start: 20101111

REACTIONS (2)
  - PREGNANCY [None]
  - DRUG EXPOSURE DURING PREGNANCY [None]
